FAERS Safety Report 4900606-7 (Version None)
Quarter: 2006Q1

REPORT INFORMATION
  Report Type: 
  Country: None (occurrence: None)
  Receive Date: 20060131
  Receipt Date: 20060120
  Transmission Date: 20060701
  Serious: Yes (Disabling, Other)
  Sender: FDA-Public Use
  Company Number: 2006004091

PATIENT
  Sex: Male

DRUGS (3)
  1. NITROSTAT [Suspect]
     Indication: ANGINA PECTORIS
     Dosage: UNK (0.4 MG, PRN) SUBLINGUAL
     Route: 060
  2. XANAX [Concomitant]
  3. BENTYL [Concomitant]

REACTIONS (7)
  - CIRCUMSTANCE OR INFORMATION CAPABLE OF LEADING TO MEDICATION ERROR [None]
  - DRUG INEFFECTIVE [None]
  - FAILURE OF IMPLANT [None]
  - MALAISE [None]
  - OEDEMA [None]
  - PHARMACEUTICAL PRODUCT COMPLAINT [None]
  - POOR QUALITY DRUG ADMINISTERED [None]
